FAERS Safety Report 9828180 (Version 1)
Quarter: 2014Q1

REPORT INFORMATION
  Report Type: Spontaneous
  Country: US (occurrence: US)
  Receive Date: 20140117
  Receipt Date: 20140117
  Transmission Date: 20141002
  Serious: No
  Sender: FDA-Public Use
  Company Number: US-GILEAD-2011-0037472

PATIENT
  Age: 41 Year
  Sex: Male

DRUGS (1)
  1. ATRIPLA [Suspect]
     Indication: HIV INFECTION
     Dates: start: 20110301

REACTIONS (5)
  - Erectile dysfunction [Unknown]
  - Sleep disorder [Unknown]
  - Headache [Recovered/Resolved]
  - Rash macular [Unknown]
  - Feeling drunk [Unknown]
